FAERS Safety Report 10158116 (Version 1)
Quarter: 2014Q2

REPORT INFORMATION
  Report Type: Spontaneous
  Country: GB (occurrence: GB)
  Receive Date: 20140507
  Receipt Date: 20140507
  Transmission Date: 20141212
  Serious: Yes (Other)
  Sender: FDA-Public Use
  Company Number: GB-PFIZER INC-2014122207

PATIENT
  Sex: Female

DRUGS (1)
  1. PREMIQUE [Suspect]
     Indication: HYPERHIDROSIS
     Dosage: 1 DF, 1X/DAY
     Route: 048

REACTIONS (1)
  - Dyspnoea [Recovered/Resolved]
